FAERS Safety Report 7061647-X (Version None)
Quarter: 2010Q4

REPORT INFORMATION
  Report Type: 
  Country: None (occurrence: None)
  Receive Date: 20101026
  Receipt Date: 20101020
  Transmission Date: 20110411
  Serious: Yes (Hospitalization, Other)
  Sender: FDA-Public Use
  Company Number: FR-ROXANE LABORATORIES, INC.-2010-RO-01402RO

PATIENT
  Age: 19 Year
  Sex: Female

DRUGS (6)
  1. PREDNISONE [Suspect]
  2. PREDNISONE [Suspect]
  3. LOSARTAN POTASSIUM USP [Suspect]
  4. DECONGESTANT CONTAINING PSEUDOEPHEDRINE [Suspect]
     Indication: NASOPHARYNGITIS
     Route: 048
  5. HYDROXYCHLOROQUINE [Suspect]
  6. ENALAPRIL MALEATE [Suspect]

REACTIONS (4)
  - NASOPHARYNGITIS [None]
  - PROTEINURIA [None]
  - RENAL IMPAIRMENT [None]
  - REVERSIBLE POSTERIOR LEUKOENCEPHALOPATHY SYNDROME [None]
